FAERS Safety Report 4960550-6 (Version None)
Quarter: 2006Q1

REPORT INFORMATION
  Report Type: 
  Country: None (occurrence: None)
  Receive Date: 20060331
  Receipt Date: 20060331
  Transmission Date: 20060701
  Serious: No
  Sender: FDA-Public Use
  Company Number: None

PATIENT
  Sex: Male
  Weight: 109.3169 kg

DRUGS (2)
  1. ACTOS [Suspect]
     Indication: BLOOD GLUCOSE INCREASED
     Dates: start: 20000101, end: 20030201
  2. AVANDIA [Suspect]
     Indication: BLOOD GLUCOSE INCREASED
     Dates: start: 20030129, end: 20060107

REACTIONS (6)
  - CATARACT [None]
  - CEREBROVASCULAR ACCIDENT [None]
  - CORONARY ARTERIAL STENT INSERTION [None]
  - MACULAR OEDEMA [None]
  - VISION BLURRED [None]
  - VISUAL ACUITY REDUCED [None]
